FAERS Safety Report 21513381 (Version 1)
Quarter: 2022Q4

REPORT INFORMATION
  Report Type: Report from Study
  Country: BR (occurrence: BR)
  Receive Date: 20221027
  Receipt Date: 20221027
  Transmission Date: 20230113
  Serious: Yes (Other)
  Sender: FDA-Public Use
  Company Number: BR-NOVARTISPH-NVSC2021BR157665

PATIENT
  Age: 32 Year
  Sex: Female

DRUGS (4)
  1. KISQALI [Suspect]
     Active Substance: RIBOCICLIB
     Indication: Product used for unknown indication
     Dosage: UNK
     Route: 065
     Dates: start: 20201126, end: 20210616
  2. KISQALI [Suspect]
     Active Substance: RIBOCICLIB
     Dosage: 3 UNK
     Route: 065
     Dates: start: 202011
  3. KISQALI [Suspect]
     Active Substance: RIBOCICLIB
     Dosage: 2 UNK
     Route: 065
     Dates: start: 202102, end: 202105
  4. XELODA [Concomitant]
     Active Substance: CAPECITABINE
     Indication: Product used for unknown indication
     Dosage: UNK (ORAL CHEMOTHERAPY)
     Route: 048

REACTIONS (7)
  - Metastases to central nervous system [Unknown]
  - Metastases to bone [Unknown]
  - Metastases to lymph nodes [Unknown]
  - Decreased immune responsiveness [Unknown]
  - Neoplasm [Unknown]
  - Disease progression [Unknown]
  - Drug ineffective [Unknown]

NARRATIVE: CASE EVENT DATE: 20210617
